FAERS Safety Report 13881700 (Version 1)
Quarter: 2017Q3

REPORT INFORMATION
  Report Type: Report from Study
  Country: FR (occurrence: FR)
  Receive Date: 20170818
  Receipt Date: 20170818
  Transmission Date: 20171127
  Serious: Yes (Hospitalization)
  Sender: FDA-Public Use
  Company Number: FR-SUN PHARMACEUTICAL INDUSTRIES LTD-2016R1-119456

PATIENT
  Age: 82 Year
  Sex: Female

DRUGS (7)
  1. ERLOTINIB [Interacting]
     Active Substance: ERLOTINIB
     Dosage: UNK
     Route: 065
  2. PEMETREXED. [Interacting]
     Active Substance: PEMETREXED
     Indication: NON-SMALL CELL LUNG CANCER
     Dosage: UNK
     Route: 065
     Dates: start: 20141209
  3. PEMETREXED. [Interacting]
     Active Substance: PEMETREXED
     Indication: EGFR GENE MUTATION
  4. ERLOTINIB [Interacting]
     Active Substance: ERLOTINIB
     Indication: NON-SMALL CELL LUNG CANCER
     Dosage: 150 MG, DAILY
     Route: 065
     Dates: start: 201402
  5. ERLOTINIB [Interacting]
     Active Substance: ERLOTINIB
     Indication: EGFR GENE MUTATION
     Dosage: 100 MG, DAILY
     Route: 065
     Dates: start: 20141221, end: 20141226
  6. CARBOPLATIN. [Suspect]
     Active Substance: CARBOPLATIN
     Indication: NON-SMALL CELL LUNG CANCER
     Dosage: UNK
     Route: 065
     Dates: start: 20141209
  7. CARBOPLATIN. [Interacting]
     Active Substance: CARBOPLATIN
     Indication: EGFR GENE MUTATION

REACTIONS (3)
  - Asthenia [Unknown]
  - Drug interaction [Unknown]
  - Diarrhoea [Recovered/Resolved]

NARRATIVE: CASE EVENT DATE: 201412
